FAERS Safety Report 4389861-2 (Version None)
Quarter: 2004Q2

REPORT INFORMATION
  Report Type: 
  Country: None (occurrence: None)
  Receive Date: 20040628
  Receipt Date: 20040614
  Transmission Date: 20050107
  Serious: Yes (Hospitalization)
  Sender: FDA-Public Use
  Company Number: 2003IM000289

PATIENT
  Age: 71 Year
  Sex: Male
  Weight: 80 kg

DRUGS (18)
  1. ACTIMMUNE [Suspect]
     Indication: INTERSTITIAL LUNG DISEASE
     Dosage: 100 UG; TIW; SUBCUTANEOUS
     Route: 058
     Dates: start: 20021122, end: 20030212
  2. METOPROLOL [Concomitant]
  3. PREDNISONE [Concomitant]
  4. PROTONIX [Concomitant]
  5. LIPITOR [Concomitant]
  6. MONOPRIL [Concomitant]
  7. TORSEMIDE [Concomitant]
  8. EFFEXOR [Concomitant]
  9. DOXAZOSIN [Concomitant]
  10. ALPHAGAN [Concomitant]
  11. CELEBREX [Concomitant]
  12. ASPIRIN [Concomitant]
  13. CALCIUM [Concomitant]
  14. CARDURA [Concomitant]
  15. NASONEX [Concomitant]
  16. COZAAR [Concomitant]
  17. DEMADEX [Concomitant]
  18. VITAMIN E [Concomitant]

REACTIONS (4)
  - ATAXIA [None]
  - CEREBROVASCULAR ACCIDENT [None]
  - DYSARTHRIA [None]
  - FATIGUE [None]
